FAERS Safety Report 5313115-0 (Version None)
Quarter: 2007Q2

REPORT INFORMATION
  Report Type: 
  Country: None (occurrence: None)
  Receive Date: 20070430
  Receipt Date: 20070420
  Transmission Date: 20071010
  Serious: Yes (Other)
  Sender: FDA-Public Use
  Company Number: SE-PFIZER INC-2007032728

PATIENT
  Sex: Female

DRUGS (3)
  1. ZELDOX (CAPSULES) [Suspect]
     Route: 048
  2. DULOXETINE [Concomitant]
     Route: 048
  3. HYDROXYZINE [Concomitant]
     Dosage: DAILY DOSE:60MG
     Route: 048

REACTIONS (3)
  - ANXIETY [None]
  - HALLUCINATION [None]
  - MENTAL DISORDER [None]
